FAERS Safety Report 24433055 (Version 1)
Quarter: 2024Q4

REPORT INFORMATION
  Report Type: Spontaneous
  Country: US (occurrence: US)
  Receive Date: 20241014
  Receipt Date: 20241014
  Transmission Date: 20250115
  Serious: No
  Sender: SANOFI AVENTIS
  Company Number: US-SANOFI-02243805

PATIENT
  Age: 63 Year
  Sex: Male

DRUGS (2)
  1. ADMELOG [Suspect]
     Active Substance: INSULIN LISPRO
     Dosage: 40 IU, TID
     Dates: start: 2022, end: 202409
  2. ADMELOG [Suspect]
     Active Substance: INSULIN LISPRO
     Dosage: 45 IU, TID
     Dates: start: 202409

REACTIONS (2)
  - Blood glucose increased [Unknown]
  - Drug ineffective [Unknown]

NARRATIVE: CASE EVENT DATE: 20240901
